FAERS Safety Report 21948807 (Version 1)
Quarter: 2023Q1

REPORT INFORMATION
  Report Type: Report from Study
  Country: CO (occurrence: CO)
  Receive Date: 20230203
  Receipt Date: 20230203
  Transmission Date: 20230417
  Serious: Yes (Hospitalization)
  Sender: FDA-Public Use
  Company Number: CO-ASTELLAS-2023US003401

PATIENT
  Age: 65 Year
  Sex: Male

DRUGS (1)
  1. TACROLIMUS [Suspect]
     Active Substance: TACROLIMUS
     Indication: Renal transplant
     Dosage: 6 MG, ONCE DAILY ( 5 MG (1 CAPSULE) AND 1 MG (1 CAPSULE): A TOTAL DOSE OF 6 MG EVERY 24 HOURS)
     Route: 048
     Dates: start: 20150625

REACTIONS (3)
  - Skin lesion [Recovering/Resolving]
  - Wound complication [Recovering/Resolving]
  - Wound infection [Recovering/Resolving]
